FAERS Safety Report 11640712 (Version 1)
Quarter: 2015Q4

REPORT INFORMATION
  Report Type: Report from Study
  Country: DK (occurrence: DK)
  Receive Date: 20151019
  Receipt Date: 20151019
  Transmission Date: 20160304
  Serious: Yes (Death)
  Sender: FDA-Public Use
  Company Number: DK-MYLANLABS-2015M1034805

PATIENT
  Age: 35 Year
  Sex: Female
  Weight: 79 kg

DRUGS (8)
  1. FLUOXETINE HYDROCHLORIDE. [Suspect]
     Active Substance: FLUOXETINE HYDROCHLORIDE
     Indication: PRODUCT USED FOR UNKNOWN INDICATION
     Route: 065
  2. ETHANOL [Concomitant]
     Active Substance: ALCOHOL
  3. QUETIAPINE [Suspect]
     Active Substance: QUETIAPINE
     Indication: PRODUCT USED FOR UNKNOWN INDICATION
     Route: 065
  4. CHLORPROTHIXENE [Suspect]
     Active Substance: CHLORPROTHIXENE
     Indication: PRODUCT USED FOR UNKNOWN INDICATION
     Route: 065
  5. CHLORDIAZEPOXIDE                   /00011502/ [Concomitant]
  6. LAMOTRIGINE. [Concomitant]
     Active Substance: LAMOTRIGINE
  7. OXAZEPAM. [Concomitant]
     Active Substance: OXAZEPAM
  8. ALPRAZOLAM. [Concomitant]
     Active Substance: ALPRAZOLAM

REACTIONS (1)
  - Toxicity to various agents [Fatal]
